FAERS Safety Report 11786571 (Version 2)
Quarter: 2015Q4

REPORT INFORMATION
  Report Type: Spontaneous
  Country: BR (occurrence: BR)
  Receive Date: 20151130
  Receipt Date: 20151204
  Transmission Date: 20160305
  Serious: Yes (Other)
  Sender: FDA-Public Use
  Company Number: BR-JNJFOC-20151125381

PATIENT
  Age: 73 Year
  Sex: Female

DRUGS (1)
  1. SIMPONI [Suspect]
     Active Substance: GOLIMUMAB
     Indication: RHEUMATOID ARTHRITIS
     Route: 058
     Dates: end: 20151130

REACTIONS (4)
  - Nasopharyngitis [Unknown]
  - Urinary tract infection [Unknown]
  - Burning sensation [Unknown]
  - Throat irritation [Unknown]

NARRATIVE: CASE EVENT DATE: 20151030
